FAERS Safety Report 9202192 (Version 1)
Quarter: 2013Q1

REPORT INFORMATION
  Report Type: Spontaneous
  Country: US (occurrence: None)
  Receive Date: 20130326
  Receipt Date: 20130326
  Transmission Date: 20140127
  Serious: Yes (Hospitalization)
  Sender: FDA-Public Use
  Company Number: AUR-APL-2013-02472

PATIENT
  Age: 77 Year
  Sex: Female
  Weight: 92.52 kg

DRUGS (14)
  1. LISINOPRIL (LISINOPRIL) [Suspect]
     Indication: BLOOD PRESSURE ABNORMAL
     Route: 048
     Dates: end: 201303
  2. LYRICA (PREGABALIN) [Suspect]
     Indication: PERIPHERAL NERVE INJURY
     Dosage: (150 MG,2 IN 1 D)
     Route: 048
     Dates: start: 2009
  3. NEURONTIN (GABAPENTIN) [Suspect]
     Indication: PERIPHERAL NERVE INJURY
     Dosage: (300 MG,3 IN 1 D)
     Route: 048
  4. CELECOXIB [Suspect]
     Indication: ARTHRITIS
     Route: 048
     Dates: start: 2001
  5. MAXZIDE [Suspect]
     Indication: BLOOD PRESSURE ABNORMAL
     Route: 048
     Dates: end: 201303
  6. CALCIUM (CALCIUM) [Concomitant]
  7. SINEQUAN (DOXEPIN HYDROCHLORIDE) [Concomitant]
  8. ZOCOR (SIMVASTATIN) [Concomitant]
  9. VITAMIN D3 (COLECALCIFEROL) [Concomitant]
  10. FLUOXETINE (FLUOXETINE) [Concomitant]
  11. VESICARE (SOLIFENACIN) [Concomitant]
  12. SINGULAIR [Concomitant]
  13. SPIRIVA (TIOTROPIUM BROMIDE) [Concomitant]
  14. ADVAIR DISKUS (FLUTICASONE PROPIONATE W/SALMETEROL) [Concomitant]

REACTIONS (7)
  - Incorrect dose administered [None]
  - Gait disturbance [None]
  - Fall [None]
  - Pneumonia [None]
  - Cystitis [None]
  - Dehydration [None]
  - Hypotension [None]
